FAERS Safety Report 5888322-9 (Version None)
Quarter: 2008Q3

REPORT INFORMATION
  Report Type: 
  Country: None (occurrence: None)
  Receive Date: 20080918
  Receipt Date: 20080908
  Transmission Date: 20090109
  Serious: Yes (Other)
  Sender: FDA-Public Use
  Company Number: US-PURDUE-USA_2008_0034822

PATIENT
  Sex: Male

DRUGS (6)
  1. OXYCONTIN [Suspect]
     Indication: DRUG ABUSE
  2. MORPHINE SULFATE [Suspect]
     Indication: DRUG ABUSE
  3. HEROIN [Suspect]
     Indication: DRUG ABUSE
  4. OPIOIDS [Suspect]
     Indication: DRUG ABUSE
  5. VICODIN [Suspect]
     Indication: DRUG ABUSE
  6. MARIJUANA [Suspect]
     Indication: DRUG ABUSE

REACTIONS (2)
  - CHILD ABUSE [None]
  - SUBSTANCE ABUSE [None]
